FAERS Safety Report 17215131 (Version 1)
Quarter: 2019Q4

REPORT INFORMATION
  Report Type: Spontaneous
  Country: JP (occurrence: JP)
  Receive Date: 20191230
  Receipt Date: 20191230
  Transmission Date: 20200122
  Serious: Yes (Other)
  Sender: FDA-Public Use
  Company Number: JP-PFIZER INC-2019512187

PATIENT
  Age: 46 Year
  Sex: Female

DRUGS (2)
  1. FASLODEX [Suspect]
     Active Substance: FULVESTRANT
     Dosage: UNK
  2. IBRANCE [Suspect]
     Active Substance: PALBOCICLIB
     Dosage: UNK
     Dates: end: 20191122

REACTIONS (6)
  - Platelet count decreased [Unknown]
  - Neoplasm progression [Unknown]
  - Neutrophil count decreased [Unknown]
  - Haemorrhoidal haemorrhage [Unknown]
  - Blood count abnormal [Recovering/Resolving]
  - Liver disorder [Unknown]
